FAERS Safety Report 5190401-9 (Version None)
Quarter: 2006Q4

REPORT INFORMATION
  Report Type: 
  Country: None (occurrence: None)
  Receive Date: 20061222
  Receipt Date: 20061215
  Transmission Date: 20070319
  Serious: Yes (Hospitalization)
  Sender: FDA-Public Use
  Company Number: SEWYE854215DEC06

PATIENT
  Sex: Male

DRUGS (4)
  1. ENBREL [Suspect]
     Indication: ANKYLOSING SPONDYLITIS
     Route: 058
     Dates: start: 20040112, end: 20050707
  2. VOLTAREN [Concomitant]
     Dosage: WHEN NEEDED
  3. LIPITOR [Concomitant]
     Indication: HYPERCHOLESTEROLAEMIA
  4. TREXAN [Concomitant]
     Dosage: 10 MG WEEKLY
     Route: 048

REACTIONS (3)
  - DYSURIA [None]
  - NEOPLASM MALIGNANT [None]
  - POLLAKIURIA [None]
